FAERS Safety Report 9746237 (Version 2)
Quarter: 2014Q1

REPORT INFORMATION
  Report Type: Spontaneous
  Country: US (occurrence: US)
  Receive Date: 20131211
  Receipt Date: 20140213
  Transmission Date: 20141002
  Serious: Yes (Other)
  Sender: FDA-Public Use
  Company Number: US-PFIZER INC-2013350534

PATIENT
  Age: 51 Year
  Sex: Male
  Weight: 65.76 kg

DRUGS (1)
  1. CELEBREX [Suspect]
     Indication: ARTHRITIS
     Dosage: 200 MG, 2X/DAY
     Route: 048
     Dates: start: 201202

REACTIONS (3)
  - Arterial occlusive disease [Unknown]
  - Angiopathy [Unknown]
  - Hypoaesthesia [Unknown]
